FAERS Safety Report 8201781-1 (Version None)
Quarter: 2012Q1

REPORT INFORMATION
  Report Type: 
  Country: None (occurrence: None)
  Receive Date: 20120312
  Receipt Date: 20120308
  Transmission Date: 20120608
  Serious: Yes (Death)
  Sender: FDA-Public Use
  Company Number: GT-ROCHE-1047304

PATIENT
  Sex: Male

DRUGS (2)
  1. XELODA [Suspect]
     Indication: COLON CANCER
     Route: 048
     Dates: start: 20110102
  2. AVASTIN [Suspect]
     Indication: COLON CANCER
     Route: 042
     Dates: start: 20110701

REACTIONS (1)
  - DISEASE PROGRESSION [None]
